FAERS Safety Report 15263001 (Version 2)
Quarter: 2024Q2

REPORT INFORMATION
  Report Type: Spontaneous
  Country: IL (occurrence: None)
  Receive Date: 20180810
  Receipt Date: 20240429
  Transmission Date: 20240715
  Serious: Yes (Other)
  Sender: FDA-Public Use
  Company Number: IL-ROCHE-2166503

PATIENT
  Sex: Male

DRUGS (5)
  1. AVASTIN [Suspect]
     Active Substance: BEVACIZUMAB
     Indication: Non-small cell lung cancer
     Route: 042
  2. CARBOPLATIN [Suspect]
     Active Substance: CARBOPLATIN
     Indication: Non-small cell lung cancer
     Route: 065
  3. TAXOL [Suspect]
     Active Substance: PACLITAXEL
     Indication: Non-small cell lung cancer
     Route: 065
  4. CISPLATIN [Suspect]
     Active Substance: CISPLATIN
     Indication: Non-small cell lung cancer
     Route: 065
  5. RECLAST [Concomitant]
     Active Substance: ZOLEDRONIC ACID

REACTIONS (4)
  - Therapy non-responder [Unknown]
  - Hip arthroplasty [Unknown]
  - Condition aggravated [Unknown]
  - Spinal disorder [Unknown]
